FAERS Safety Report 7409142-X (Version None)
Quarter: 2011Q2

REPORT INFORMATION
  Report Type: 
  Country: None (occurrence: None)
  Receive Date: 20110412
  Receipt Date: 20110405
  Transmission Date: 20111010
  Serious: Yes (Hospitalization)
  Sender: FDA-Public Use
  Company Number: FR-SANOFI-AVENTIS-2011SA020837

PATIENT
  Age: 79 Year
  Sex: Male

DRUGS (13)
  1. PLAVIX [Suspect]
     Route: 048
  2. OMEPRAZOLE [Suspect]
     Route: 048
  3. LEVOTHYROX [Suspect]
     Route: 048
  4. BUDESONIDE/FORMOTEROL FUMARATE [Suspect]
     Dosage: DOSE:1 UNIT(S)
     Route: 055
  5. FUROSEMIDE [Suspect]
     Route: 048
  6. PERMIXON [Suspect]
     Route: 048
  7. PRAVASTATIN SODIUM [Suspect]
     Route: 048
  8. KARDEGIC [Concomitant]
  9. MICARDIS [Suspect]
     Route: 048
     Dates: end: 20101029
  10. MIRTAZAPINE [Suspect]
     Route: 048
     Dates: end: 20101001
  11. AMIODARONE [Suspect]
     Route: 048
  12. BROMAZEPAM [Suspect]
     Dosage: DOSE:1 UNIT(S)
     Route: 048
  13. FORLAX [Suspect]
     Dosage: DOSE:2 UNIT(S)
     Route: 048

REACTIONS (1)
  - NIGHT SWEATS [None]
